FAERS Safety Report 5935723-6 (Version None)
Quarter: 2008Q4

REPORT INFORMATION
  Report Type: 
  Country: None (occurrence: None)
  Receive Date: 20081029
  Receipt Date: 20081029
  Transmission Date: 20090506
  Serious: No
  Sender: FDA-Public Use
  Company Number: None

PATIENT
  Age: 59 Year
  Sex: Male
  Weight: 118 kg

DRUGS (2)
  1. SPIRONOLACTONE [Suspect]
     Indication: ASCITES
     Dosage: 100 MG EVERY DAY PO
     Route: 048
     Dates: start: 20080116, end: 20081027
  2. SPIRONOLACTONE [Suspect]
     Indication: HEPATIC CIRRHOSIS
     Dosage: 100 MG EVERY DAY PO
     Route: 048
     Dates: start: 20080116, end: 20081027

REACTIONS (2)
  - GYNAECOMASTIA [None]
  - TREATMENT NONCOMPLIANCE [None]
